FAERS Safety Report 17704668 (Version 5)
Quarter: 2021Q4

REPORT INFORMATION
  Report Type: Spontaneous
  Country: US (occurrence: US)
  Receive Date: 20200424
  Receipt Date: 20211214
  Transmission Date: 20220303
  Serious: No
  Sender: FDA-Public Use
  Company Number: US-SA-2020SA102448

PATIENT
  Age: 67 Year
  Sex: Female

DRUGS (4)
  1. DUPIXENT [Suspect]
     Active Substance: DUPILUMAB
     Indication: Dermatitis
     Dosage: 300 MG, QOW
     Route: 058
     Dates: start: 20200303
  2. DUPIXENT [Suspect]
     Active Substance: DUPILUMAB
     Indication: Dermatitis allergic
  3. BIOTIN [Concomitant]
     Active Substance: BIOTIN
     Indication: Vitamin supplementation
  4. MINERALS\VITAMINS [Concomitant]
     Active Substance: MINERALS\VITAMINS
     Indication: Vitamin supplementation

REACTIONS (11)
  - Pruritus [Unknown]
  - Rash [Unknown]
  - Condition aggravated [Unknown]
  - Therapeutic product effect decreased [Unknown]
  - Dermatitis [Unknown]
  - Eczema [Unknown]
  - Product use in unapproved indication [Unknown]
  - COVID-19 [Recovering/Resolving]
  - SARS-CoV-2 test positive [Recovering/Resolving]
  - Fatigue [Recovering/Resolving]
  - Asthenia [Recovering/Resolving]

NARRATIVE: CASE EVENT DATE: 20200303
